FAERS Safety Report 19356802 (Version 1)
Quarter: 2021Q2

REPORT INFORMATION
  Report Type: Spontaneous
  Country: US (occurrence: US)
  Receive Date: 20210602
  Receipt Date: 20210602
  Transmission Date: 20210717
  Serious: No
  Sender: FDA-Public Use
  Company Number: None

PATIENT
  Age: 63 Year
  Sex: Male
  Weight: 99.79 kg

DRUGS (1)
  1. DIVALPROEX (DIVALPROEX NA 500MG TAB,SA) [Suspect]
     Active Substance: DIVALPROEX SODIUM
     Indication: BIPOLAR I DISORDER
     Route: 048
     Dates: start: 20200306, end: 20200825

REACTIONS (4)
  - Hyperammonaemia [None]
  - Lethargy [None]
  - Thrombocytopenia [None]
  - Metabolic disorder [None]

NARRATIVE: CASE EVENT DATE: 20200903
